FAERS Safety Report 23451134 (Version 2)
Quarter: 2024Q1

REPORT INFORMATION
  Report Type: Spontaneous
  Country: CA (occurrence: CA)
  Receive Date: 20240129
  Receipt Date: 20240322
  Transmission Date: 20240410
  Serious: Yes (Other)
  Sender: FDA-Public Use
  Company Number: CA-PFIZER INC-202200213739

PATIENT
  Age: 66 Year
  Sex: Male
  Weight: 112 kg

DRUGS (29)
  1. RUXIENCE [Suspect]
     Active Substance: RITUXIMAB-PVVR
     Indication: Granulomatosis with polyangiitis
     Dosage: 840 MG, WEEKLY FOR 4 WEEKS
     Route: 042
     Dates: start: 20220202, end: 20220202
  2. RUXIENCE [Suspect]
     Active Substance: RITUXIMAB-PVVR
     Dosage: 840 MG, WEEKLY FOR 4 WEEKS
     Route: 042
     Dates: start: 20220202, end: 20220202
  3. RUXIENCE [Suspect]
     Active Substance: RITUXIMAB-PVVR
     Dosage: 840 MG, WEEKLY FOR 4 WEEKS
     Route: 042
     Dates: start: 20220202, end: 20220224
  4. RUXIENCE [Suspect]
     Active Substance: RITUXIMAB-PVVR
     Dosage: 840 MG, WEEKLY FOR 4 WEEKS
     Route: 042
     Dates: start: 20220209, end: 20220209
  5. RUXIENCE [Suspect]
     Active Substance: RITUXIMAB-PVVR
     Dosage: 840 MG, WEEKLY FOR 4 WEEKS
     Route: 042
     Dates: start: 20220209
  6. RUXIENCE [Suspect]
     Active Substance: RITUXIMAB-PVVR
     Dosage: 500 MG, DAY 0 AND DAY 14
     Route: 042
     Dates: start: 20220802
  7. RUXIENCE [Suspect]
     Active Substance: RITUXIMAB-PVVR
     Dosage: 500 MG, DAY 0 AND DAY 14
     Route: 042
     Dates: start: 20220802, end: 20220815
  8. RUXIENCE [Suspect]
     Active Substance: RITUXIMAB-PVVR
     Dosage: 500 MG, DAY 0 AND DAY 14
     Route: 042
     Dates: start: 20220815
  9. RUXIENCE [Suspect]
     Active Substance: RITUXIMAB-PVVR
     Dosage: 500 MG, DAY 0 AND DAY 15, ONE-TIME DOSE
     Route: 042
     Dates: start: 20230215, end: 20230215
  10. RUXIENCE [Suspect]
     Active Substance: RITUXIMAB-PVVR
     Dosage: 500 MG, ONE DOSE
     Route: 042
     Dates: start: 20230811, end: 20230811
  11. ACETAMINOPHEN [Concomitant]
     Active Substance: ACETAMINOPHEN
     Dosage: 650 MG
     Route: 048
  12. ATORVASTATIN [Concomitant]
     Active Substance: ATORVASTATIN
     Dosage: 40 MG, 1X/DAY
     Route: 065
  13. ATROVENT [Concomitant]
     Active Substance: IPRATROPIUM BROMIDE
     Dosage: 1 DF, DOSAGE INFORMATION NOT AVAILABLE
     Route: 055
  14. CYCLOPHOSPHAMIDE [Concomitant]
     Active Substance: CYCLOPHOSPHAMIDE
     Dosage: UNK
  15. EZETIMIBE [Concomitant]
     Active Substance: EZETIMIBE
     Dosage: 10 MG, 1X/DAY
     Route: 065
  16. IMOVANE [Concomitant]
     Active Substance: ZOPICLONE
     Dosage: 1 DF, AS NEEDED (7.5 MG BED TIME PRN)
     Route: 065
  17. IRBESARTAN [Concomitant]
     Active Substance: IRBESARTAN
     Dosage: 150 MG, 1X/DAY
     Route: 065
  18. METFORMIN [Concomitant]
     Active Substance: METFORMIN HYDROCHLORIDE
     Dosage: 1000 MG, 2X/DAY
     Route: 065
  19. NUCALA [Concomitant]
     Active Substance: MEPOLIZUMAB
     Dosage: 1 DF
     Route: 065
  20. OZEMPIC [Concomitant]
     Active Substance: SEMAGLUTIDE
     Dosage: 50 MG, WEEKLY
     Route: 065
  21. PANTOPRAZOLE SODIUM [Concomitant]
     Active Substance: PANTOPRAZOLE SODIUM
     Dosage: 40 MG, 1X/DAY
     Route: 065
  22. PREDNISONE [Concomitant]
     Active Substance: PREDNISONE
     Dosage: 30 MG, 1X/DAY
     Route: 065
  23. PREDNISONE [Concomitant]
     Active Substance: PREDNISONE
     Dosage: 5 MG
     Route: 065
  24. PREDNISONE [Concomitant]
     Active Substance: PREDNISONE
     Dosage: 50 MG
     Route: 065
     Dates: start: 20220813
  25. SPIRIVA [Concomitant]
     Active Substance: TIOTROPIUM BROMIDE MONOHYDRATE
     Dosage: 1 DF, 2X/DAY
     Route: 065
  26. SULFADIAZINE\TRIMETHOPRIM [Concomitant]
     Active Substance: SULFADIAZINE\TRIMETHOPRIM
     Dosage: 150 MG, EVERY 3 TIMES A WEEK
     Route: 065
  27. SULFADIAZINE\TRIMETHOPRIM [Concomitant]
     Active Substance: SULFADIAZINE\TRIMETHOPRIM
     Dosage: 150 MG
     Route: 065
  28. SULFADIAZINE\TRIMETHOPRIM [Concomitant]
     Active Substance: SULFADIAZINE\TRIMETHOPRIM
     Dosage: 150 MG, EVERY 3 TIMES A WEEK
     Route: 065
  29. VENTOLIN [Concomitant]
     Active Substance: ALBUTEROL SULFATE
     Dosage: 1 DF
     Route: 055

REACTIONS (5)
  - Asthma [Unknown]
  - Headache [Recovered/Resolved]
  - Off label use [Unknown]
  - Off label use [Unknown]
  - Intentional product use issue [Unknown]

NARRATIVE: CASE EVENT DATE: 20220202
